FAERS Safety Report 10083701 (Version 1)
Quarter: 2014Q2

REPORT INFORMATION
  Report Type: Spontaneous
  Country: US (occurrence: US)
  Receive Date: 20140417
  Receipt Date: 20140417
  Transmission Date: 20141212
  Serious: No
  Sender: FDA-Public Use
  Company Number: US-PFIZER INC-2014105888

PATIENT
  Sex: Female

DRUGS (5)
  1. CHANTIX [Suspect]
     Indication: SMOKING CESSATION THERAPY
     Dosage: 0.5 MG, UNK
  2. CHANTIX [Suspect]
     Dosage: TAKING HALF TABLET
  3. CHANTIX [Suspect]
     Dosage: 0.5 MG, UNK
     Dates: start: 2014, end: 2014
  4. CHANTIX [Suspect]
     Dosage: 1 MG, UNK
     Dates: start: 2014, end: 2014
  5. CHANTIX [Suspect]
     Dosage: 0.5 MG, 2X/DAY (TAKING HALF TABLET 1 MG TWO TIMES A DAY)
     Dates: start: 2014

REACTIONS (2)
  - Nausea [Unknown]
  - Vomiting [Unknown]
